FAERS Safety Report 9215636 (Version 2)
Quarter: 2015Q2

REPORT INFORMATION
  Report Type: Spontaneous
  Country: US (occurrence: US)
  Receive Date: 20130408
  Receipt Date: 20150421
  Transmission Date: 20150821
  Serious: Yes (Hospitalization)
  Sender: FDA-Public Use
  Company Number: US-PFIZER INC-2013104338

PATIENT
  Age: 19 Year
  Sex: Male

DRUGS (3)
  1. DILANTIN [Suspect]
     Active Substance: PHENYTOIN
     Dosage: 40 DF, UNK
     Dates: start: 19400603
  2. DILANTIN [Suspect]
     Active Substance: PHENYTOIN
     Dosage: 70 DF, UNK
     Dates: start: 19400603
  3. DILANTIN [Suspect]
     Active Substance: PHENYTOIN
     Indication: EPILEPSY
     Dosage: 3 DF, UNK
     Dates: start: 19400328

REACTIONS (20)
  - Headache [Unknown]
  - Somnolence [Unknown]
  - Nausea [Unknown]
  - Diplopia [Unknown]
  - Dry skin [Unknown]
  - Euphoric mood [Unknown]
  - Dizziness [Unknown]
  - Gait disturbance [Unknown]
  - Tinnitus [Unknown]
  - Psychomotor hyperactivity [Unknown]
  - Mydriasis [Unknown]
  - Hyperhidrosis [Unknown]
  - Vertigo [Unknown]
  - Vomiting [Unknown]
  - Nystagmus [Unknown]
  - Skin abrasion [Unknown]
  - Overdose [Unknown]
  - Inappropriate affect [Unknown]
  - Toxicity to various agents [Unknown]
  - Confusional state [Unknown]
